FAERS Safety Report 10752511 (Version 1)
Quarter: 2015Q1

REPORT INFORMATION
  Report Type: Spontaneous
  Country: US (occurrence: US)
  Receive Date: 20150130
  Receipt Date: 20150130
  Transmission Date: 20150721
  Serious: No
  Sender: FDA-Public Use
  Company Number: US-GLAXOSMITHKLINE-US2014GSK048848

PATIENT
  Age: 50 Year
  Sex: Male

DRUGS (5)
  1. PROMACTA [Suspect]
     Active Substance: ELTROMBOPAG OLAMINE
     Indication: HEPATITIS C
     Dosage: 25 MG, QD
     Route: 048
     Dates: start: 201412
  2. PEGINTRON [Concomitant]
     Active Substance: PEGINTERFERON ALFA-2B
  3. SOVALDI [Suspect]
     Active Substance: SOFOSBUVIR
     Indication: PRODUCT USED FOR UNKNOWN INDICATION
  4. RESPERDAL [Concomitant]
  5. VITAMIN C [Concomitant]
     Active Substance: ASCORBIC ACID

REACTIONS (3)
  - Fatigue [Unknown]
  - Incorrect dose administered [Unknown]
  - Blood count abnormal [Unknown]

NARRATIVE: CASE EVENT DATE: 20141129
